FAERS Safety Report 8002875-6 (Version None)
Quarter: 2011Q4

REPORT INFORMATION
  Report Type: 
  Country: None (occurrence: None)
  Receive Date: 20111222
  Receipt Date: 20110119
  Transmission Date: 20120403
  Serious: No
  Sender: FDA-Public Use
  Company Number: US-GLAXOSMITHKLINE-A0907372A

PATIENT
  Age: 69 Year
  Sex: Male

DRUGS (2)
  1. AVODART [Suspect]
     Indication: BENIGN PROSTATIC HYPERPLASIA
     Dosage: .5TAB PER DAY
     Route: 048
     Dates: start: 20101124
  2. HIGH BLOOD PRESSURE PILL [Concomitant]

REACTIONS (2)
  - PRURITUS [None]
  - SEXUAL DYSFUNCTION [None]
